FAERS Safety Report 4702269-2 (Version None)
Quarter: 2005Q2

REPORT INFORMATION
  Report Type: 
  Country: None (occurrence: None)
  Receive Date: 20050628
  Receipt Date: 20050628
  Transmission Date: 20051028
  Serious: Yes (Other)
  Sender: FDA-Public Use
  Company Number: None

PATIENT
  Sex: Female
  Weight: 52.6173 kg

DRUGS (4)
  1. CITALOPRAM 40 MG ALPHARMA/PURPAC [Suspect]
     Indication: ANOREXIA NERVOSA
     Dosage: 40 MG DAY ORAL
     Route: 048
     Dates: start: 20050522, end: 20050623
  2. CITALOPRAM 40 MG ALPHARMA/PURPAC [Suspect]
     Indication: ANXIETY
     Dosage: 40 MG DAY ORAL
     Route: 048
     Dates: start: 20050522, end: 20050623
  3. CITALOPRAM 40 MG ALPHARMA/PURPAC [Suspect]
     Indication: DEPRESSION
     Dosage: 40 MG DAY ORAL
     Route: 048
     Dates: start: 20050522, end: 20050623
  4. ZYPREXA [Concomitant]

REACTIONS (3)
  - ANXIETY [None]
  - DEPRESSION [None]
  - PHARMACEUTICAL PRODUCT COMPLAINT [None]
